FAERS Safety Report 9695793 (Version 1)
Quarter: 2013Q4

REPORT INFORMATION
  Report Type: Spontaneous
  Country: US (occurrence: None)
  Receive Date: 20131118
  Receipt Date: 20131118
  Transmission Date: 20140711
  Serious: Yes (Other)
  Sender: FDA-Public Use
  Company Number: None

PATIENT
  Age: 72 Year
  Sex: Female

DRUGS (3)
  1. ZOLPIDEM [Suspect]
     Indication: INSOMNIA
     Route: 048
     Dates: start: 20130918, end: 20130918
  2. INDOMETHACIN [Concomitant]
  3. NORTRIPTYLINE [Concomitant]

REACTIONS (4)
  - Disorientation [None]
  - Dizziness [None]
  - Fall [None]
  - Psychotic disorder [None]
